FAERS Safety Report 24878695 (Version 1)
Quarter: 2025Q1

REPORT INFORMATION
  Report Type: Report from Study
  Country: BG (occurrence: BG)
  Receive Date: 20250123
  Receipt Date: 20250123
  Transmission Date: 20250409
  Serious: Yes (Hospitalization, Other)
  Sender: UCB
  Company Number: BG-UCBSA-2024059665

PATIENT
  Sex: Male

DRUGS (1)
  1. CIMZIA [Suspect]
     Active Substance: CERTOLIZUMAB PEGOL
     Indication: Axial spondyloarthritis
     Route: 058

REACTIONS (3)
  - Pleural effusion [Unknown]
  - Pneumonitis [Unknown]
  - Colon cancer [Unknown]

NARRATIVE: CASE EVENT DATE: 20240830
